FAERS Safety Report 26211544 (Version 1)
Quarter: 2025Q4

REPORT INFORMATION
  Report Type: Report from Study
  Country: TW (occurrence: TW)
  Receive Date: 20251230
  Receipt Date: 20251230
  Transmission Date: 20260117
  Serious: Yes (Death, Other)
  Sender: GILEAD
  Company Number: TW-GILEAD-2025-0742800

PATIENT
  Age: 69 Year
  Sex: Female

DRUGS (1)
  1. SACITUZUMAB GOVITECAN-HZIY [Suspect]
     Active Substance: SACITUZUMAB GOVITECAN-HZIY
     Indication: Hormone receptor positive breast cancer
     Dosage: 360 MG
     Route: 065
     Dates: start: 20250418

REACTIONS (1)
  - Death [Fatal]
